FAERS Safety Report 9028681 (Version 3)
Quarter: 2013Q2

REPORT INFORMATION
  Report Type: Spontaneous
  Country: GB (occurrence: GB)
  Receive Date: 20130124
  Receipt Date: 20130429
  Transmission Date: 20140414
  Serious: Yes (Other)
  Sender: FDA-Public Use
  Company Number: PHFR2013GB000775

PATIENT
  Age: 35 Year
  Sex: Male

DRUGS (5)
  1. CLOZARIL [Suspect]
     Indication: SCHIZOPHRENIA
     Dosage: UNK
     Route: 048
     Dates: start: 20110223
  2. CLOZARIL [Suspect]
     Dosage: 350 MG
     Route: 048
     Dates: start: 20130124
  3. CLONAZEPAM [Concomitant]
     Indication: SCHIZOPHRENIA
     Dosage: 5 MG
     Route: 048
     Dates: start: 20130123
  4. DIAZEPAM [Concomitant]
     Dosage: 20 MG
     Route: 048
     Dates: start: 20130123
  5. QUETIAPINE [Concomitant]
     Dosage: 500 MG
     Route: 048
     Dates: start: 20130123

REACTIONS (2)
  - Limb injury [Recovered/Resolved]
  - Blood creatine phosphokinase increased [Recovered/Resolved]
